FAERS Safety Report 5293923-5 (Version None)
Quarter: 2007Q2

REPORT INFORMATION
  Report Type: 
  Country: None (occurrence: None)
  Receive Date: 20070405
  Receipt Date: 20070330
  Transmission Date: 20071010
  Serious: Yes (Death, Other)
  Sender: FDA-Public Use
  Company Number: 2007PV030581

PATIENT
  Sex: Female

DRUGS (2)
  1. BYETTA [Suspect]
     Indication: DRUG USE FOR UNKNOWN INDICATION
     Dosage: 10 MCG;BID; SC, 5 MCG;BID; SC
     Route: 058
     Dates: end: 20060124
  2. BYETTA [Suspect]
     Indication: DRUG USE FOR UNKNOWN INDICATION
     Dosage: 10 MCG;BID; SC, 5 MCG;BID; SC
     Route: 058
     Dates: start: 20051001

REACTIONS (2)
  - METASTASES TO LIVER [None]
  - PANCREATIC CARCINOMA METASTATIC [None]
